FAERS Safety Report 25436430 (Version 2)
Quarter: 2025Q2

REPORT INFORMATION
  Report Type: Report from Study
  Country: US (occurrence: US)
  Receive Date: 20250614
  Receipt Date: 20250626
  Transmission Date: 20250717
  Serious: Yes (Hospitalization)
  Sender: UNITED THERAPEUTICS
  Company Number: US-UNITED THERAPEUTICS-UNT-2025-016136

PATIENT
  Sex: Female

DRUGS (4)
  1. TREPROSTINIL SODIUM [Interacting]
     Active Substance: TREPROSTINIL SODIUM
     Indication: Pulmonary arterial hypertension
     Route: 041
  2. TREPROSTINIL SODIUM [Interacting]
     Active Substance: TREPROSTINIL SODIUM
     Route: 041
  3. TREPROSTINIL SODIUM [Interacting]
     Active Substance: TREPROSTINIL SODIUM
     Route: 041
  4. SOTATERCEPT [Interacting]
     Active Substance: SOTATERCEPT
     Indication: Product used for unknown indication

REACTIONS (5)
  - Heart rate increased [Unknown]
  - Drug interaction [Unknown]
  - Chest pain [Unknown]
  - Dyspnoea [Unknown]
  - Dizziness [Unknown]
